FAERS Safety Report 15461019 (Version 1)
Quarter: 2018Q4

REPORT INFORMATION
  Report Type: Spontaneous
  Country: US (occurrence: US)
  Receive Date: 20181003
  Receipt Date: 20181003
  Transmission Date: 20190204
  Serious: No
  Sender: FDA-Public Use
  Company Number: US-PERRIGO-18US005979

PATIENT
  Age: 55 Year
  Sex: Female
  Weight: 47.62 kg

DRUGS (1)
  1. IMIQUIMOD. [Suspect]
     Active Substance: IMIQUIMOD
     Indication: SKIN DISORDER
     Dosage: UNKNOWN, UNKNOWN
     Route: 061
     Dates: start: 20180525

REACTIONS (3)
  - Product administered at inappropriate site [Unknown]
  - Application site pain [Not Recovered/Not Resolved]
  - Application site erythema [Not Recovered/Not Resolved]

NARRATIVE: CASE EVENT DATE: 20180525
